FAERS Safety Report 5032063-7 (Version None)
Quarter: 2006Q2

REPORT INFORMATION
  Report Type: 
  Country: None (occurrence: None)
  Receive Date: 20060619
  Receipt Date: 20060609
  Transmission Date: 20061013
  Serious: Yes (Other)
  Sender: FDA-Public Use
  Company Number: CHPA2006US05669

PATIENT
  Age: 62 Year
  Sex: Female
  Weight: 98.4 kg

DRUGS (1)
  1. 4 WAY FAST ACTING NASAL SPRAY (NCH) (PHENYLEPHRINE) NASAL SPRAY [Suspect]
     Indication: DYSPNOEA
     Dosage: 1 BOTTLE, EVERY 2 WEEKS, NASAL
     Route: 045

REACTIONS (1)
  - DRUG DEPENDENCE [None]
